FAERS Safety Report 4537038-X (Version None)
Quarter: 2004Q4

REPORT INFORMATION
  Report Type: 
  Country: None (occurrence: None)
  Receive Date: 20041220
  Receipt Date: 20041208
  Transmission Date: 20050328
  Serious: Yes (Other)
  Sender: FDA-Public Use
  Company Number: GBWYE266908DEC04

PATIENT
  Sex: Male

DRUGS (2)
  1. EFFEXOR XR [Suspect]
     Indication: DEPRESSION
     Dosage: SEE IMAGE
     Route: 048
     Dates: end: 20041101
  2. EFFEXOR XR [Suspect]
     Indication: POST-TRAUMATIC STRESS DISORDER
     Dosage: SEE IMAGE
     Route: 048
     Dates: end: 20041101

REACTIONS (9)
  - CONDITION AGGRAVATED [None]
  - DEHYDRATION [None]
  - DEPRESSION [None]
  - DRUG CLEARANCE DECREASED [None]
  - DRUG WITHDRAWAL SYNDROME [None]
  - FLUID INTAKE REDUCED [None]
  - HAEMATOCRIT INCREASED [None]
  - MALIGNANT MELANOMA [None]
  - VISUAL DISTURBANCE [None]
